FAERS Safety Report 8383135-0 (Version None)
Quarter: 2012Q2

REPORT INFORMATION
  Report Type: 
  Country: None (occurrence: None)
  Receive Date: 20120522
  Receipt Date: 20120507
  Transmission Date: 20120825
  Serious: Yes (Hospitalization, Other)
  Sender: FDA-Public Use
  Company Number: 2012SGN00202

PATIENT
  Age: 62 Year
  Sex: Male
  Weight: 109 kg

DRUGS (11)
  1. TRIMETOPRIM + SULFAMETOXAZOL (SULFAMETHOXAZOLE, TRIMETHOPRIM) [Concomitant]
  2. DIURESIN (INDAPAMIDE) [Concomitant]
  3. INSULIN MIXTARD (INSULIN HUMAN) [Concomitant]
  4. BRENTUXIMAB VEDOTIN/PLACEBO (BRENTUXIMAB VEDOTIN/PLACEBO) INJECTION [Suspect]
     Indication: HODGKIN'S DISEASE
     Dosage: 1.8 MG/KG, Q21D, INTRAVENOUS
     Route: 042
     Dates: start: 20111115, end: 20120412
  5. BISOCARD (BISOPROLOL) [Concomitant]
  6. AMLOPIN (AMLODIPINE) [Concomitant]
  7. HEVIRAN (ACICLOVIR SODIUM) [Concomitant]
  8. ENALAPRIL MALEATE [Concomitant]
  9. FENOFIBRATE [Concomitant]
  10. NIMESIL (NIMESULIDE) [Concomitant]
  11. METFORMAX (METFORMIN HYDROCHLORIDE) [Concomitant]

REACTIONS (4)
  - WEIGHT DECREASED [None]
  - POLYDIPSIA [None]
  - POLYURIA [None]
  - HYPERGLYCAEMIA [None]
